FAERS Safety Report 5843150-5 (Version None)
Quarter: 2008Q3

REPORT INFORMATION
  Report Type: 
  Country: None (occurrence: None)
  Receive Date: 20080813
  Receipt Date: 20080804
  Transmission Date: 20090109
  Serious: Yes (Other)
  Sender: FDA-Public Use
  Company Number: GB-GENENTECH-265707

PATIENT
  Age: 77 Year
  Sex: Male

DRUGS (3)
  1. BEVACIZUMAB [Suspect]
     Indication: COLON CANCER
     Dosage: 7.5 MG/KG, Q4W
     Route: 065
  2. OXALIPLATIN [Concomitant]
     Indication: COLON CANCER
     Route: 065
  3. FLUOROURACIL [Concomitant]
     Indication: COLON CANCER
     Route: 065

REACTIONS (1)
  - VENOOCCLUSIVE LIVER DISEASE [None]
